FAERS Safety Report 5915401-X (Version None)
Quarter: 2008Q4

REPORT INFORMATION
  Report Type: 
  Country: None (occurrence: None)
  Receive Date: 20081010
  Receipt Date: 20081003
  Transmission Date: 20090506
  Serious: Yes (Death, Hospitalization)
  Sender: FDA-Public Use
  Company Number: FR-BAXTER-2008BH010589

PATIENT
  Age: 60 Year
  Sex: Female

DRUGS (16)
  1. ENDOXAN BAXTER [Suspect]
     Indication: CHRONIC LYMPHOCYTIC LEUKAEMIA
     Route: 042
     Dates: start: 20080305, end: 20080305
  2. ENDOXAN BAXTER [Suspect]
     Route: 042
     Dates: start: 20080402, end: 20080402
  3. ENDOXAN BAXTER [Suspect]
     Route: 042
     Dates: start: 20080505, end: 20080507
  4. MABTHERA [Suspect]
     Indication: CHRONIC LYMPHOCYTIC LEUKAEMIA
     Route: 042
     Dates: start: 20080402, end: 20080402
  5. MABTHERA [Suspect]
     Route: 042
     Dates: start: 20080430, end: 20080430
  6. FLUDARA [Suspect]
     Indication: CHRONIC LYMPHOCYTIC LEUKAEMIA
     Route: 042
     Dates: start: 20080305, end: 20080305
  7. FLUDARA [Suspect]
     Route: 042
     Dates: start: 20080402, end: 20080402
  8. FLUDARA [Suspect]
     Route: 042
     Dates: start: 20080505, end: 20080507
  9. BACTRIM [Concomitant]
  10. ALLOPURINOL [Concomitant]
  11. ISOPTIN [Concomitant]
  12. LEVOTHYROX [Concomitant]
  13. ZOVIRAX [Concomitant]
  14. SPECIAFOLDINE [Concomitant]
  15. MOPRAL [Concomitant]
  16. ZOPHREN [Concomitant]

REACTIONS (5)
  - ANAEMIA [None]
  - BONE MARROW FAILURE [None]
  - GASTROINTESTINAL HAEMORRHAGE [None]
  - PURPURA [None]
  - THROMBOCYTOPENIA [None]
